FAERS Safety Report 9275241 (Version 1)
Quarter: 2013Q2

REPORT INFORMATION
  Report Type: Spontaneous
  Country: US (occurrence: US)
  Receive Date: 20130507
  Receipt Date: 20130507
  Transmission Date: 20140414
  Serious: Yes (Hospitalization, Other)
  Sender: FDA-Public Use
  Company Number: US-SANOFI-AVENTIS-2013SA045196

PATIENT
  Age: 63 Year
  Sex: Male

DRUGS (4)
  1. LANTUS SOLOSTAR [Suspect]
     Dosage: DOSE:25 UNIT(S)
     Route: 058
     Dates: start: 20130320
  2. SOLOSTAR [Suspect]
     Dates: start: 20130320
  3. METFORMIN [Suspect]
  4. HUMALOG [Concomitant]

REACTIONS (7)
  - Hospitalisation [Unknown]
  - Local swelling [Unknown]
  - Pain in extremity [Unknown]
  - Musculoskeletal discomfort [Unknown]
  - Depression [Unknown]
  - Ketoacidosis [Unknown]
  - Blood glucose increased [Unknown]
